FAERS Safety Report 8617702 (Version 2)
Quarter: 2013Q2

REPORT INFORMATION
  Report Type: Spontaneous
  Country: US (occurrence: US)
  Receive Date: 20120615
  Receipt Date: 20130529
  Transmission Date: 20140414
  Serious: Yes (Hospitalization)
  Sender: FDA-Public Use
  Company Number: US-GLAXOSMITHKLINE-A0840562A

PATIENT
  Age: 70 Year
  Sex: Male
  Weight: 163.6 kg

DRUGS (5)
  1. AVANDIA [Suspect]
     Indication: TYPE 2 DIABETES MELLITUS
     Dosage: 8MG PER DAY
     Route: 048
     Dates: start: 200406, end: 2007
  2. COZAAR [Concomitant]
  3. EFFEXOR [Concomitant]
  4. PAROXETINE [Concomitant]
  5. ZOCOR [Concomitant]

REACTIONS (9)
  - Cerebrovascular accident [Not Recovered/Not Resolved]
  - Brain stem infarction [Unknown]
  - Carotid artery stenosis [Unknown]
  - Loss of libido [Unknown]
  - Balance disorder [Unknown]
  - Muscular weakness [Unknown]
  - Back pain [Unknown]
  - Testicular swelling [Unknown]
  - Back pain [Unknown]
